FAERS Safety Report 9207372 (Version 2)
Quarter: 2014Q1

REPORT INFORMATION
  Report Type: Spontaneous
  Country: US (occurrence: US)
  Receive Date: 20130403
  Receipt Date: 20140114
  Transmission Date: 20141002
  Serious: Yes (Other)
  Sender: FDA-Public Use
  Company Number: US-BAYER-2013-040153

PATIENT
  Age: 32 Year
  Sex: Female

DRUGS (5)
  1. YAZ [Suspect]
     Dosage: UNK
     Route: 048
     Dates: start: 200404, end: 200911
  2. YASMIN [Suspect]
     Dosage: UNK
     Route: 048
     Dates: start: 200404, end: 200911
  3. OCELLA [Suspect]
     Dosage: UNK
     Route: 048
     Dates: start: 200404, end: 200911
  4. AMPICILLIN [Concomitant]
     Dosage: 500 MG, UNK
  5. IBUPROFEN [Concomitant]
     Dosage: 800 MG, UNK

REACTIONS (6)
  - Biliary dyskinesia [None]
  - Injury [None]
  - Emotional distress [None]
  - Anxiety [None]
  - Psychological trauma [None]
  - Pain [None]
